FAERS Safety Report 6997391-4 (Version None)
Quarter: 2010Q3

REPORT INFORMATION
  Report Type: 
  Country: None (occurrence: None)
  Receive Date: 20100918
  Receipt Date: 20091008
  Transmission Date: 20110219
  Serious: No
  Sender: FDA-Public Use
  Company Number: US-WYE-H11541609

PATIENT
  Sex: Female
  Weight: 90.35 kg

DRUGS (6)
  1. PRISTIQ [Suspect]
     Indication: DEPRESSION
     Route: 048
     Dates: start: 20091006
  2. PRISTIQ [Suspect]
     Indication: ANXIETY
  3. ERGOCALCIFEROL [Concomitant]
  4. SYNTHROID [Concomitant]
  5. XANAX [Concomitant]
  6. KLONOPIN [Concomitant]

REACTIONS (3)
  - ANXIETY [None]
  - CONDITION AGGRAVATED [None]
  - NAUSEA [None]
